FAERS Safety Report 6166718-8 (Version None)
Quarter: 2009Q2

REPORT INFORMATION
  Report Type: 
  Country: None (occurrence: None)
  Receive Date: 20090423
  Receipt Date: 20090423
  Transmission Date: 20091009
  Serious: Yes (Hospitalization)
  Sender: FDA-Public Use
  Company Number: None

PATIENT
  Age: 46 Year
  Sex: Female
  Weight: 58.9676 kg

DRUGS (2)
  1. BONIVA [Suspect]
     Indication: OSTEOPOROSIS
     Dosage: ONE TAB MONTHLY PO
     Route: 048
     Dates: start: 20090404, end: 20090404
  2. BONIVA [Suspect]
     Indication: OSTEOPOROSIS
     Dosage: ONE TAB MONTHLY PO
     Route: 048
     Dates: start: 20090404, end: 20090404

REACTIONS (2)
  - EAR PAIN [None]
  - PAIN IN JAW [None]
